FAERS Safety Report 7246055-0 (Version None)
Quarter: 2011Q1

REPORT INFORMATION
  Report Type: 
  Country: None (occurrence: None)
  Receive Date: 20110126
  Receipt Date: 20110119
  Transmission Date: 20110831
  Serious: Yes (Other)
  Sender: FDA-Public Use
  Company Number: CHPA2011US01253

PATIENT
  Sex: Male

DRUGS (2)
  1. EX-LAX REG STR CHOCOLATED LAX PCS SEN [Suspect]
     Indication: CONSTIPATION
     Dosage: 360 MG, ONCE/SINGLE
     Route: 048
     Dates: start: 20110119, end: 20110119
  2. EX-LAX REG STR CHOCOLATED LAX PCS SEN [Suspect]
     Dosage: 30 MG, BID
     Route: 048
     Dates: start: 20110119, end: 20110119

REACTIONS (4)
  - HALLUCINATION [None]
  - OVERDOSE [None]
  - DIZZINESS [None]
  - DRUG INEFFECTIVE [None]
